FAERS Safety Report 14999329 (Version 1)
Quarter: 2018Q2

REPORT INFORMATION
  Report Type: Spontaneous
  Country: US (occurrence: US)
  Receive Date: 20180612
  Receipt Date: 20180612
  Transmission Date: 20180711
  Serious: No
  Sender: FDA-Public Use
  Company Number: US-PFIZER INC-2018233092

PATIENT
  Age: 62 Year
  Sex: Female
  Weight: 58 kg

DRUGS (1)
  1. IBRANCE [Suspect]
     Active Substance: PALBOCICLIB
     Indication: BREAST CANCER METASTATIC
     Dosage: 100 MG, CYCLIC (ONCE A DAY, FOR 21 DAYS ON AND 7 DAYS OFF)
     Route: 048
     Dates: start: 201805

REACTIONS (5)
  - Vomiting [Recovered/Resolved]
  - Pruritus [Not Recovered/Not Resolved]
  - Nausea [Recovered/Resolved]
  - Rash [Not Recovered/Not Resolved]
  - Feeling abnormal [Recovering/Resolving]

NARRATIVE: CASE EVENT DATE: 2018
